FAERS Safety Report 7325573-0 (Version None)
Quarter: 2011Q1

REPORT INFORMATION
  Report Type: 
  Country: None (occurrence: None)
  Receive Date: 20110302
  Receipt Date: 20110224
  Transmission Date: 20110831
  Serious: Yes (Other)
  Sender: FDA-Public Use
  Company Number: JP-SANOFI-AVENTIS-2010SA010450

PATIENT
  Age: 80 Year
  Sex: Female

DRUGS (15)
  1. LIPITOR [Concomitant]
  2. SIGMART [Concomitant]
  3. BLOPRESS [Concomitant]
     Route: 048
  4. ADALAT CC [Concomitant]
     Route: 048
  5. ASPIRIN [Concomitant]
     Route: 048
  6. ARTIST [Concomitant]
     Route: 048
  7. PLETAL [Concomitant]
     Route: 048
  8. FLUITRAN [Concomitant]
     Route: 048
  9. ALOSENN [Concomitant]
  10. MUCOSTA [Concomitant]
  11. BUP-4 [Concomitant]
     Route: 048
  12. ALLEGRA [Suspect]
     Route: 048
     Dates: start: 20100224, end: 20100224
  13. NITROPEN [Suspect]
     Route: 048
  14. TAKEPRON [Concomitant]
     Route: 048
  15. DEPAS [Concomitant]

REACTIONS (1)
  - LOSS OF CONSCIOUSNESS [None]
